FAERS Safety Report 9596347 (Version 1)
Quarter: 2013Q4

REPORT INFORMATION
  Report Type: Spontaneous
  Country: US (occurrence: US)
  Receive Date: 20131004
  Receipt Date: 20131004
  Transmission Date: 20140711
  Serious: No
  Sender: FDA-Public Use
  Company Number: US-VIIV HEALTHCARE LIMITED-A1009955A

PATIENT
  Age: 58 Year
  Sex: Male

DRUGS (5)
  1. SELZENTRY [Suspect]
     Indication: HIV INFECTION
     Dosage: 600MG TWICE PER DAY
     Route: 048
     Dates: start: 20130117
  2. INTELENCE [Concomitant]
  3. ISENTRESS [Concomitant]
  4. UNKNOWN MEDICATION [Concomitant]
     Indication: BLOOD CHOLESTEROL
  5. COLACE [Concomitant]
     Indication: CONSTIPATION

REACTIONS (1)
  - Abdominal pain [Not Recovered/Not Resolved]
